FAERS Safety Report 5847014-2 (Version None)
Quarter: 2008Q3

REPORT INFORMATION
  Report Type: 
  Country: None (occurrence: None)
  Receive Date: 20080815
  Receipt Date: 20080804
  Transmission Date: 20090109
  Serious: Yes (Other)
  Sender: FDA-Public Use
  Company Number: CH-PFIZER INC-2008063068

PATIENT
  Sex: Female
  Weight: 58 kg

DRUGS (3)
  1. CHANTIX [Suspect]
     Indication: SMOKING CESSATION THERAPY
     Route: 048
     Dates: start: 20080625, end: 20080703
  2. PREDNISON [Concomitant]
     Dosage: DAILY DOSE:1MG
     Route: 048
  3. DEROXAT [Concomitant]
     Dosage: DAILY DOSE:20MG
     Route: 048

REACTIONS (2)
  - DEPRESSION [None]
  - MEDICATION ERROR [None]
